FAERS Safety Report 10418904 (Version 1)
Quarter: 2014Q3

REPORT INFORMATION
  Report Type: Spontaneous
  Country: US (occurrence: US)
  Receive Date: 20140829
  Receipt Date: 20140829
  Transmission Date: 20150326
  Serious: Yes (Other)
  Sender: FDA-Public Use
  Company Number: US-BAYER-2014-127188

PATIENT
  Age: 70 Year
  Sex: Male

DRUGS (1)
  1. NEXAVAR [Suspect]
     Active Substance: SORAFENIB
     Indication: HEPATIC NEOPLASM
     Dosage: 200 MG, QD
     Route: 048
     Dates: start: 201309

REACTIONS (8)
  - Rash [None]
  - Joint swelling [None]
  - Asthenia [None]
  - Tumour marker increased [None]
  - Constipation [None]
  - Weight decreased [None]
  - Hepatic neoplasm [None]
  - Alopecia [Recovering/Resolving]

NARRATIVE: CASE EVENT DATE: 201309
